FAERS Safety Report 7798793-9 (Version None)
Quarter: 2011Q4

REPORT INFORMATION
  Report Type: 
  Country: None (occurrence: None)
  Receive Date: 20111004
  Receipt Date: 20111004
  Transmission Date: 20120403
  Serious: Yes (Other)
  Sender: FDA-Public Use
  Company Number: None

PATIENT
  Sex: Female
  Weight: 66.2252 kg

DRUGS (1)
  1. BENAZEPRIL HYDROCHLORIDE [Suspect]
     Indication: PRODUCT SUBSTITUTION ISSUE
     Dates: start: 20110915

REACTIONS (4)
  - PRODUCT SUBSTITUTION ISSUE [None]
  - VOMITING [None]
  - ABDOMINAL PAIN UPPER [None]
  - ECONOMIC PROBLEM [None]
